FAERS Safety Report 22342562 (Version 2)
Quarter: 2023Q2

REPORT INFORMATION
  Report Type: Spontaneous
  Country: HN (occurrence: HN)
  Receive Date: 20230519
  Receipt Date: 20230606
  Transmission Date: 20230721
  Serious: Yes (Death, Disabling, Other)
  Sender: FDA-Public Use
  Company Number: HN-002147023-NVSC2023HN114579

PATIENT
  Age: 79 Year
  Sex: Male
  Weight: 63.7 kg

DRUGS (3)
  1. GLIVEC [Suspect]
     Active Substance: IMATINIB MESYLATE
     Indication: Chronic myeloid leukaemia
     Dosage: 400 MG (1 X 400 MG)
     Route: 048
     Dates: start: 20180302
  2. ERYTHROPOIETIN [Concomitant]
     Active Substance: ERYTHROPOIETIN
     Indication: Product used for unknown indication
     Dosage: UNK
     Route: 065
     Dates: start: 20180302
  3. ERYTHROPOIETIN [Concomitant]
     Active Substance: ERYTHROPOIETIN
     Dosage: UNK, QD, (1 OF 400 MG)
     Route: 048
     Dates: start: 20230228

REACTIONS (6)
  - Cardiac arrest [Fatal]
  - General physical health deterioration [Unknown]
  - Renal failure [Unknown]
  - Platelet count increased [Unknown]
  - White blood cell count increased [Unknown]
  - Haemoglobin decreased [Unknown]

NARRATIVE: CASE EVENT DATE: 20220215
